FAERS Safety Report 25461526 (Version 1)
Quarter: 2025Q2

REPORT INFORMATION
  Report Type: Other
  Country: AU (occurrence: AU)
  Receive Date: 20250620
  Receipt Date: 20250620
  Transmission Date: 20250717
  Serious: Yes (Other)
  Sender: PRASCO
  Company Number: AU-Prasco Laboratories-PRAS20250260

PATIENT

DRUGS (1)
  1. LISDEXAMFETAMINE [Suspect]
     Active Substance: LISDEXAMFETAMINE
     Indication: Drug dependence
     Dosage: 1-WEEK INDUCTION.
     Route: 048

REACTIONS (2)
  - Cellulitis [Unknown]
  - Bipolar I disorder [Unknown]
